FAERS Safety Report 13567830 (Version 1)
Quarter: 2017Q2

REPORT INFORMATION
  Report Type: Other
  Country: FI (occurrence: FI)
  Receive Date: 20170522
  Receipt Date: 20170522
  Transmission Date: 20170830
  Serious: Yes (Other)
  Sender: FDA-Public Use
  Company Number: FI-HIKMA PHARMACEUTICALS CO. LTD-2017FI006056

PATIENT

DRUGS (3)
  1. REMSIMA [Suspect]
     Active Substance: INFLIXIMAB
     Indication: ARTHRITIS REACTIVE
     Dosage: 400 MG, UNK
     Route: 042
     Dates: start: 20170321, end: 20170321
  2. PREDNISOLON                        /00016201/ [Concomitant]
     Active Substance: PREDNISOLONE
     Dosage: 5 MG, DAILY
     Route: 048
  3. OXIKLORIN [Concomitant]
     Active Substance: HYDROXYCHLOROQUINE SULFATE
     Dosage: 300 MG, DAILY

REACTIONS (5)
  - C-reactive protein increased [Not Recovered/Not Resolved]
  - Leukocytosis [Not Recovered/Not Resolved]
  - Type IV hypersensitivity reaction [Unknown]
  - Alanine aminotransferase increased [Unknown]
  - Drug specific antibody present [Unknown]

NARRATIVE: CASE EVENT DATE: 20170329
